FAERS Safety Report 19840903 (Version 1)
Quarter: 2021Q3

REPORT INFORMATION
  Report Type: Spontaneous
  Country: DE (occurrence: DE)
  Receive Date: 20210916
  Receipt Date: 20210916
  Transmission Date: 20211014
  Serious: Yes (Hospitalization)
  Sender: FDA-Public Use
  Company Number: DE-TEVA-2021-DE-1951567

PATIENT
  Age: 87 Year
  Sex: Male
  Weight: 97 kg

DRUGS (11)
  1. TORASEMID [Suspect]
     Active Substance: TORSEMIDE
     Dosage: 20 MILLIGRAM DAILY; 1?1?0?0
     Route: 048
  2. XELEVIA 50MG [Concomitant]
     Active Substance: SITAGLIPTIN PHOSPHATE
     Dosage: 50 MILLIGRAM DAILY; 1?0?0?0
     Route: 048
  3. ACETYLSALICYLSAURE [Concomitant]
     Active Substance: ASPIRIN
     Dosage: 100 MILLIGRAM DAILY; 1?0?0?0
     Route: 048
  4. XIPAMID 10?1A PHARMA [Concomitant]
     Active Substance: XIPAMIDE
     Dosage: 20 MILLIGRAM DAILY; 1?1?0?0
     Route: 048
  5. MAGNESIUM DIASPORAL 300MG [Concomitant]
     Dosage: 300 MILLIGRAM DAILY; 1?0?0?0
     Route: 048
  6. FLOTRIN [Concomitant]
     Active Substance: TERAZOSIN HYDROCHLORIDE
     Dosage: 1 DOSAGE FORMS DAILY; 0?0?1?0
     Route: 048
  7. ENTRESTO [Suspect]
     Active Substance: SACUBITRIL\VALSARTAN
     Dosage: 2 DOSAGE FORMS DAILY; 49 | 51 MG, 1?0?1?0
     Route: 048
  8. PANTOPRAZOL [Concomitant]
     Active Substance: PANTOPRAZOLE SODIUM
     Dosage: 40 MILLIGRAM DAILY;  1?0?0?0
     Route: 048
  9. LIXIANA 30MG [Concomitant]
     Active Substance: EDOXABAN TOSYLATE
     Dosage: 30 MILLIGRAM DAILY; 1?0?0?0
     Route: 048
  10. METOPROLOL. [Suspect]
     Active Substance: METOPROLOL
     Dosage: 190 MILLIGRAM DAILY; 95 MG, 1?0?1?0, SUSTAINED?RELEASE TABLETS
     Route: 048
  11. CODEINTROPFEN?CT 1MG/TROPFEN [Concomitant]
     Dosage: 10 GTT DAILY; 1 MG / DROP, 0?0?10?0, DROPS
     Route: 048

REACTIONS (3)
  - Prerenal failure [Recovering/Resolving]
  - Dizziness [Recovering/Resolving]
  - Hypotension [Recovering/Resolving]
